FAERS Safety Report 5323516-2 (Version None)
Quarter: 2007Q2

REPORT INFORMATION
  Report Type: 
  Country: None (occurrence: None)
  Receive Date: 20070514
  Receipt Date: 20070504
  Transmission Date: 20071010
  Serious: Yes (Hospitalization)
  Sender: FDA-Public Use
  Company Number: PHHO2007KR07444

PATIENT
  Age: 64 Year
  Sex: Male
  Weight: 72.9 kg

DRUGS (3)
  1. EXJADE [Suspect]
     Indication: IRON OVERLOAD
     Route: 048
     Dates: start: 20070415, end: 20070422
  2. SIGMART [Concomitant]
     Dates: start: 20060906
  3. CODENAL [Concomitant]
     Indication: COUGH
     Dates: start: 20070119

REACTIONS (4)
  - ERYTHEMA MULTIFORME [None]
  - PYREXIA [None]
  - RASH PAPULAR [None]
  - RASH PRURITIC [None]
